FAERS Safety Report 7782183-9 (Version None)
Quarter: 2011Q3

REPORT INFORMATION
  Report Type: 
  Country: None (occurrence: None)
  Receive Date: 20110927
  Receipt Date: 20110801
  Transmission Date: 20111222
  Serious: Yes (Other)
  Sender: FDA-Public Use
  Company Number: FR-BAXTER-2011BH024415

PATIENT
  Age: 12 Month
  Sex: Female
  Weight: 9 kg

DRUGS (15)
  1. ALBUMIN (HUMAN) [Suspect]
     Route: 042
     Dates: start: 20110803
  2. URSO FALK [Concomitant]
     Indication: CHOLESTASIS
     Route: 048
     Dates: start: 20100101
  3. PROGRAF [Concomitant]
     Indication: PROPHYLAXIS AGAINST TRANSPLANT REJECTION
     Route: 048
     Dates: start: 20110324
  4. ALDACTONE [Concomitant]
     Indication: ASCITES
     Route: 048
     Dates: start: 20100101
  5. ALBUMIN (HUMAN) [Suspect]
     Indication: ASCITES
     Route: 042
     Dates: start: 20110714
  6. ALBUMIN (HUMAN) [Suspect]
     Indication: HYPOALBUMINAEMIA
     Route: 042
     Dates: start: 20110714
  7. ALBUMIN (HUMAN) [Suspect]
     Route: 042
     Dates: start: 20110803
  8. FERROSTRANE [Concomitant]
     Indication: IRON DEFICIENCY ANAEMIA
     Route: 048
     Dates: start: 20100101
  9. ALBUMIN (HUMAN) [Suspect]
     Route: 042
     Dates: start: 20110721
  10. FLUCONAZOLE [Concomitant]
     Indication: PROPHYLAXIS
     Route: 048
  11. ASPIRIN [Concomitant]
     Indication: VASCULAR STENT INSERTION
     Route: 048
     Dates: start: 20110324
  12. SPECIAFOLDINE [Concomitant]
     Indication: IRON DEFICIENCY ANAEMIA
     Route: 048
     Dates: start: 20100101
  13. RED BLOOD CELLS [Concomitant]
     Indication: PRODUCT USED FOR UNKNOWN INDICATION
     Dates: start: 20110720, end: 20110720
  14. ADALAT [Concomitant]
     Indication: HYPERTENSION
     Route: 048
     Dates: start: 20110324
  15. ALBUMIN (HUMAN) [Suspect]
     Route: 042
     Dates: start: 20110721

REACTIONS (1)
  - DERMATITIS EXFOLIATIVE [None]
